FAERS Safety Report 5028637-X (Version None)
Quarter: 2006Q2

REPORT INFORMATION
  Report Type: 
  Country: None (occurrence: None)
  Receive Date: 20060619
  Receipt Date: 20060526
  Transmission Date: 20061013
  Serious: Yes (Hospitalization, Other)
  Sender: FDA-Public Use
  Company Number: PHBS2006JP07874

PATIENT
  Age: 85 Year
  Sex: Male

DRUGS (6)
  1. HALCION [Concomitant]
     Route: 065
  2. GASTER [Concomitant]
     Route: 065
  3. RADIOTHERAPY [Concomitant]
     Dosage: UNK, UNK
     Route: 065
     Dates: start: 20040101
  4. AREDIA [Suspect]
     Indication: METASTASES TO BONE
     Dosage: 45 MG,
     Route: 065
     Dates: start: 20040106, end: 20050906
  5. DEXAMETHASONE TAB [Concomitant]
  6. SAIREI-TO [Concomitant]

REACTIONS (6)
  - BONE DISORDER [None]
  - DENTURE WEARER [None]
  - EATING DISORDER [None]
  - MALNUTRITION [None]
  - ORAL PAIN [None]
  - OSTEONECROSIS [None]
